FAERS Safety Report 11336694 (Version 5)
Quarter: 2017Q4

REPORT INFORMATION
  Report Type: Spontaneous
  Country: HU (occurrence: HU)
  Receive Date: 20150804
  Receipt Date: 20171211
  Transmission Date: 20180320
  Serious: Yes (Hospitalization)
  Sender: FDA-Public Use
  Company Number: HU-OTSUKA-2015_006495

PATIENT
  Age: 48 Year
  Sex: Female

DRUGS (16)
  1. ABILIFY [Suspect]
     Active Substance: ARIPIPRAZOLE
     Indication: BIPOLAR DISORDER
     Dosage: 30 MG, QD
     Route: 048
     Dates: start: 201110, end: 20150721
  2. DEPAKINE CHRONO [Concomitant]
     Active Substance: VALPROATE SODIUM
     Dosage: 500 MG, BID
     Route: 048
     Dates: start: 20150708
  3. AKINETON [Concomitant]
     Active Substance: BIPERIDEN HYDROCHLORIDE
     Indication: EXTRAPYRAMIDAL DISORDER
     Dosage: 2 MG, TID
     Route: 048
     Dates: start: 20150722
  4. AKINETON [Concomitant]
     Active Substance: BIPERIDEN HYDROCHLORIDE
     Indication: PROPHYLAXIS
  5. DEPAKINE CHRONO [Concomitant]
     Active Substance: VALPROATE SODIUM
     Indication: AFFECTIVE DISORDER
     Dosage: 500 MG, TID
     Route: 048
     Dates: start: 20150203, end: 20150708
  6. RIVOTRIL [Concomitant]
     Active Substance: CLONAZEPAM
     Indication: ANXIETY
     Dosage: 0.5 MG, QD
     Route: 048
     Dates: start: 2014, end: 20150709
  7. CLONAZEPAM. [Concomitant]
     Active Substance: CLONAZEPAM
     Indication: ANXIETY
     Dosage: 5 MG, QD
     Route: 048
     Dates: start: 2014, end: 20140709
  8. ABILIFY MAINTENA [Suspect]
     Active Substance: ARIPIPRAZOLE
     Dosage: 400 MG, QM
     Route: 030
  9. NORMODIPINE [Concomitant]
     Active Substance: AMLODIPINE BESYLATE
     Indication: HYPERTONIA
     Dosage: 5 MG, BID
     Route: 048
  10. HALOPERIDOL DECANOATE. [Concomitant]
     Active Substance: HALOPERIDOL DECANOATE
     Indication: SCHIZOPHRENIA
     Dosage: 50 MG/ML, QM
     Route: 030
     Dates: start: 20141016, end: 20150609
  11. AKINETON [Concomitant]
     Active Substance: BIPERIDEN HYDROCHLORIDE
     Indication: PRODUCT USED FOR UNKNOWN INDICATION
     Dosage: UNK
     Route: 065
     Dates: start: 20150722
  12. ABILIFY [Suspect]
     Active Substance: ARIPIPRAZOLE
     Indication: PSYCHOTIC DISORDER
  13. DEPAKINE CHRONO [Concomitant]
     Active Substance: VALPROATE SODIUM
     Indication: MOOD ALTERED
     Dosage: 1000 MG, BID
     Route: 048
     Dates: start: 201110, end: 20141209
  14. ABILIFY MAINTENA [Suspect]
     Active Substance: ARIPIPRAZOLE
     Indication: SCHIZOPHRENIA
     Dosage: 400 ONCE DAILY ON 2 CONSECUTIVE DAYS, UNK
     Route: 030
     Dates: end: 20150722
  15. TENAXUM [Concomitant]
     Active Substance: RILMENIDINE
     Indication: HYPERTONIA
     Dosage: 1 MG, QD
     Route: 048
  16. ABILIFY [Suspect]
     Active Substance: ARIPIPRAZOLE
     Indication: SCHIZOPHRENIA

REACTIONS (6)
  - Overdose [Unknown]
  - Hospitalisation [Recovered/Resolved]
  - Inappropriate schedule of drug administration [Unknown]
  - Loss of personal independence in daily activities [Unknown]
  - Treatment noncompliance [Unknown]
  - Asthenia [Unknown]

NARRATIVE: CASE EVENT DATE: 20150708
